FAERS Safety Report 7197557-7 (Version None)
Quarter: 2010Q4

REPORT INFORMATION
  Report Type: 
  Country: None (occurrence: None)
  Receive Date: 20101227
  Receipt Date: 20101216
  Transmission Date: 20110411
  Serious: Yes (Other)
  Sender: FDA-Public Use
  Company Number: GB-ASTRAZENECA-2010SE46944

PATIENT
  Age: 53 Year

DRUGS (2)
  1. OMEPRAZOLE [Suspect]
     Route: 048
     Dates: start: 20040101
  2. IBUPROFEN [Concomitant]
     Route: 048

REACTIONS (2)
  - ABDOMINAL PAIN UPPER [None]
  - DYSPEPSIA [None]
